FAERS Safety Report 6222862-8 (Version None)
Quarter: 2009Q2

REPORT INFORMATION
  Report Type: 
  Country: None (occurrence: None)
  Receive Date: 20090611
  Receipt Date: 20090603
  Transmission Date: 20091009
  Serious: Yes (Life-Threatening, Hospitalization)
  Sender: FDA-Public Use
  Company Number: JP-JNJFOC-20090603409

PATIENT
  Age: 75 Year
  Sex: Female

DRUGS (6)
  1. CRAVIT [Suspect]
     Indication: INFECTION PROPHYLAXIS
     Route: 048
  2. CARBENIN [Suspect]
     Indication: INFECTION PROPHYLAXIS
     Route: 042
  3. ZOSYN [Suspect]
     Indication: INFECTION PROPHYLAXIS
     Route: 042
  4. CIPROFLOXACIN HYDROCHLORIDE [Suspect]
     Indication: INFECTION PROPHYLAXIS
     Route: 042
  5. TARGOCID [Suspect]
     Indication: INFECTION PROPHYLAXIS
     Route: 042
  6. PANSPORIN [Suspect]
     Indication: INFECTION PROPHYLAXIS
     Route: 042

REACTIONS (4)
  - DISSEMINATED INTRAVASCULAR COAGULATION [None]
  - MULTI-ORGAN FAILURE [None]
  - PSEUDOMEMBRANOUS COLITIS [None]
  - SEPTIC SHOCK [None]
